FAERS Safety Report 13040058 (Version 1)
Quarter: 2016Q4

REPORT INFORMATION
  Report Type: Spontaneous
  Country: US (occurrence: US)
  Receive Date: 20161219
  Receipt Date: 20161219
  Transmission Date: 20170207
  Serious: No
  Sender: FDA-Public Use
  Company Number: US-ENDO PHARMACEUTICALS INC.-2016-002066

PATIENT
  Sex: Male
  Weight: 87.17 kg

DRUGS (2)
  1. ENDOCET [Suspect]
     Active Substance: ACETAMINOPHEN\OXYCODONE HYDROCHLORIDE
     Indication: PRODUCT USED FOR UNKNOWN INDICATION
     Dosage: 5/325 MG FOUR TIMES A DAY
     Route: 048
     Dates: start: 2011
  2. OPANA ER [Suspect]
     Active Substance: OXYMORPHONE HYDROCHLORIDE
     Indication: BACK PAIN
     Route: 048
     Dates: start: 2011

REACTIONS (4)
  - Eyelid oedema [Unknown]
  - Unevaluable event [Unknown]
  - Appetite disorder [Unknown]
  - Constipation [Unknown]

NARRATIVE: CASE EVENT DATE: 2015
